FAERS Safety Report 11263395 (Version 3)
Quarter: 2019Q1

REPORT INFORMATION
  Report Type: Report from Study
  Country: US (occurrence: US)
  Receive Date: 20150712
  Receipt Date: 20190121
  Transmission Date: 20190417
  Serious: Yes (Hospitalization, Other)
  Sender: FDA-Public Use
  Company Number: US-ROCHE-1606342

PATIENT
  Sex: Female
  Weight: 41.3 kg

DRUGS (10)
  1. NUTROPIN AQ [Suspect]
     Active Substance: SOMATROPIN
     Indication: GROWTH HORMONE DEFICIENCY
     Route: 058
  2. NUTROPIN AQ [Suspect]
     Active Substance: SOMATROPIN
     Indication: HYPOPITUITARISM
     Route: 058
  3. VITAMIN B6 [Concomitant]
     Active Substance: PYRIDOXINE HYDROCHLORIDE
     Route: 065
  4. CLONAZEPAM. [Concomitant]
     Active Substance: CLONAZEPAM
     Dosage: 1 TABLET AS NEEDED
     Route: 048
  5. TRILEPTAL [Concomitant]
     Active Substance: OXCARBAZEPINE
     Dosage: 8 ML IN AM AND 1 ML IN NIGHT
     Route: 050
  6. CYPROHEPTADINE HCL [Concomitant]
     Active Substance: CYPROHEPTADINE HYDROCHLORIDE
     Route: 048
  7. SAIZEN [Suspect]
     Active Substance: SOMATROPIN
     Indication: PRODUCT USED FOR UNKNOWN INDICATION
     Dosage: DAILY AT BEDTIME
     Route: 058
  8. MELATONIN [Concomitant]
     Active Substance: MELATONIN
     Dosage: 2 TABLETS DAILY
     Route: 048
  9. KEPPRA [Concomitant]
     Active Substance: LEVETIRACETAM
     Dosage: TAKE 1 TAB TWICE DAILY
     Route: 065
  10. KEPPRA [Concomitant]
     Active Substance: LEVETIRACETAM
     Dosage: 100 MG/ML SOLUTION
     Route: 065

REACTIONS (9)
  - Haemarthrosis [Unknown]
  - Injury [Unknown]
  - Glioma [Unknown]
  - Congenital musculoskeletal anomaly [Unknown]
  - Seizure [Recovered/Resolved]
  - Mitral valve prolapse [Unknown]
  - Seizure [Unknown]
  - Asthenia [Unknown]
  - Gait disturbance [Unknown]
